FAERS Safety Report 7044050-8 (Version None)
Quarter: 2010Q4

REPORT INFORMATION
  Report Type: 
  Country: None (occurrence: None)
  Receive Date: 20101013
  Receipt Date: 20101001
  Transmission Date: 20110411
  Serious: Yes (Other)
  Sender: FDA-Public Use
  Company Number: IT-PFIZER INC-2010120708

PATIENT
  Age: 65 Year
  Sex: Male

DRUGS (4)
  1. FARMORUBICINA [Suspect]
     Indication: GASTRIC CANCER
     Dosage: 60 MG, CYCLIC
     Route: 042
     Dates: start: 20100608, end: 20100622
  2. CISPLATIN [Concomitant]
     Indication: GASTRIC CANCER
     Dosage: 60 MG
     Route: 042
     Dates: start: 20100608, end: 20100817
  3. FLUOROURACIL [Concomitant]
     Indication: GASTRIC CANCER
     Dosage: 600 MG, UNK
     Route: 042
     Dates: start: 20100608, end: 20100622
  4. CALCIUM LEVOFOLINATE [Concomitant]
     Indication: GASTRIC CANCER
     Dosage: 40 MG
     Route: 042
     Dates: start: 20100608, end: 20100817

REACTIONS (2)
  - EJECTION FRACTION DECREASED [None]
  - VENTRICULAR HYPOKINESIA [None]
